FAERS Safety Report 5655087-5 (Version None)
Quarter: 2008Q1

REPORT INFORMATION
  Report Type: 
  Country: None (occurrence: None)
  Receive Date: 20080307
  Receipt Date: 20071130
  Transmission Date: 20080703
  Serious: No
  Sender: FDA-Public Use
  Company Number: A0696785A

PATIENT
  Age: 61 Year
  Sex: Female
  Weight: 99.1 kg

DRUGS (11)
  1. REQUIP [Suspect]
     Indication: RESTLESS LEGS SYNDROME
     Dosage: 1MG AT NIGHT
     Route: 048
     Dates: start: 20060301
  2. LYRICA [Concomitant]
  3. BACLOFEN [Concomitant]
  4. CITALOPRAM HYDROBROMIDE [Concomitant]
  5. METOPROLOL TARTRATE [Concomitant]
  6. CLONAZEPAM [Concomitant]
  7. BUPROPION HCL [Concomitant]
  8. ENALAPRIL MALEATE [Concomitant]
  9. ISO-BID [Concomitant]
  10. ASPIRIN [Concomitant]
  11. HYDROCODONE BITARTRATE [Concomitant]

REACTIONS (2)
  - GAMBLING [None]
  - WEIGHT INCREASED [None]
